FAERS Safety Report 26123869 (Version 2)
Quarter: 2025Q4

REPORT INFORMATION
  Report Type: Spontaneous
  Country: RU (occurrence: RU)
  Receive Date: 20251205
  Receipt Date: 20251216
  Transmission Date: 20260118
  Serious: Yes (Other)
  Sender: ROCHE
  Company Number: RU-ROCHE-10000449139

PATIENT
  Sex: Male

DRUGS (1)
  1. MOSUNETUZUMAB [Suspect]
     Active Substance: MOSUNETUZUMAB
     Indication: Follicular lymphoma
     Dosage: C1 D1: 1 MG
     Dates: start: 20250731, end: 20251125

REACTIONS (2)
  - Pyrexia [Unknown]
  - Interstitial lung disease [Unknown]
